FAERS Safety Report 9353019 (Version 2)
Quarter: 2014Q1

REPORT INFORMATION
  Report Type: Spontaneous
  Country: JP (occurrence: JP)
  Receive Date: 20130618
  Receipt Date: 20140115
  Transmission Date: 20141002
  Serious: Yes (Death, Disabling, Other)
  Sender: FDA-Public Use
  Company Number: JP-OTSUKA-JP-2012-16136

PATIENT
  Age: 85 Year
  Sex: Female
  Weight: 37 kg

DRUGS (34)
  1. SAMSCA [Suspect]
     Indication: CARDIAC FAILURE CONGESTIVE
     Dosage: 7.5 MG MILLIGRAM(S), QD
     Route: 048
     Dates: start: 20120814, end: 20120817
  2. LASIX [Concomitant]
     Dosage: 20 MG MILLIGRAM(S), QD
     Route: 041
     Dates: start: 20120810, end: 20120811
  3. LASIX [Concomitant]
     Dosage: 20 MG MILLIGRAM(S), BID
     Route: 041
     Dates: start: 20120814, end: 20120814
  4. LASIX [Concomitant]
     Dosage: 20 MG MILLIGRAM(S), QD
     Route: 041
     Dates: start: 20120815, end: 20120817
  5. SOLDEM 3A [Concomitant]
     Dosage: 500 ML MILLILITRE(S), QD
     Route: 041
     Dates: start: 20120810, end: 20120811
  6. SOLDEM 3A [Concomitant]
     Dosage: 500 ML MILLILITRE(S), BID
     Route: 041
     Dates: start: 20120814, end: 20120814
  7. SOLDEM 3A [Concomitant]
     Dosage: 500 ML MILLILITRE(S), QD
     Route: 041
     Dates: start: 20120815, end: 20120816
  8. SOLDEM 3A [Concomitant]
     Dosage: 500 ML MILLILITRE(S), TID
     Route: 041
     Dates: start: 20120817, end: 20120817
  9. SOLDEM 3A [Concomitant]
     Dosage: 500 ML MILLILITRE(S), BID
     Route: 041
     Dates: start: 20120818, end: 20120821
  10. DERIBADEX [Concomitant]
     Dosage: 100 IU, QD
     Route: 041
     Dates: start: 20120812, end: 20120812
  11. DISTILLED WATER [Concomitant]
     Dosage: 40 ML MILLILITRE(S), QD
     Route: 042
     Dates: start: 20120814, end: 20120816
  12. HANP [Concomitant]
     Dosage: 3000 MCG, QD
     Route: 041
     Dates: start: 20120814, end: 20120816
  13. GLUCOSE [Concomitant]
     Dosage: 20 ML MILLILITRE(S), QD
     Route: 042
     Dates: start: 20120814, end: 20120816
  14. GLUCOSE [Concomitant]
     Dosage: 20 ML MILLILITRE(S), QD
     Route: 042
     Dates: start: 20120820, end: 20120820
  15. GLUCOSE [Concomitant]
     Dosage: 20 ML MILLILITRE(S), BID
     Route: 042
     Dates: start: 20120821, end: 20120823
  16. LACTEC [Concomitant]
     Dosage: 500 ML MILLILITRE(S), BID
     Route: 041
     Dates: start: 20120817, end: 20120817
  17. GLYCEREB [Concomitant]
     Dosage: 200 ML MILLILITRE(S), BID
     Route: 041
     Dates: start: 20120817, end: 20120817
  18. NOVO HEPARIN [Concomitant]
     Dosage: 5 ML MILLILITRE(S), QD
     Route: 042
     Dates: start: 20120817, end: 20120817
  19. NOVO HEPARIN [Concomitant]
     Dosage: 15 ML MILLILITRE(S), DAILY DOSE
     Route: 041
     Dates: start: 20120817, end: 20120817
  20. NOVO HEPARIN [Concomitant]
     Dosage: 2.5 ML MILLILITRE(S), BID
     Route: 041
     Dates: start: 20120818, end: 20120821
  21. VITAMEDIN [Concomitant]
     Dosage: 1 DF DOSAGE FORM, QD
     Route: 041
     Dates: start: 20120817, end: 20120821
  22. SEISHOKU [Concomitant]
     Dosage: 10 ML MILLILITRE(S), BID
     Route: 042
     Dates: start: 20120820, end: 20120820
  23. SEISHOKU [Concomitant]
     Dosage: 50 ML MILLILITRE(S), DAILY DOSE
     Route: 042
     Dates: start: 20120821, end: 20120821
  24. ISOTONIC SODIUM CHLORIDE SOLUTION [Concomitant]
     Dosage: 20 ML MILLILITRE(S), QD
     Route: 041
     Dates: start: 20120820, end: 20120820
  25. ISOTONIC SODIUM CHLORIDE SOLUTION [Concomitant]
     Dosage: 20 ML MILLILITRE(S), QD
     Route: 041
     Dates: start: 20120822, end: 20120823
  26. OMEPRAZOLE [Concomitant]
     Dosage: 20 MG MILLIGRAM(S), QD
     Route: 042
     Dates: start: 20120820, end: 20120820
  27. OMEPRAZOLE [Concomitant]
     Dosage: 20 MG MILLIGRAM(S), BID
     Route: 042
     Dates: start: 20120821, end: 20120823
  28. THYRADIN S [Concomitant]
     Indication: HYPOTHYROIDISM
     Dosage: 175 MCG, QD
     Route: 048
  29. LASIX [Concomitant]
     Indication: CARDIAC FAILURE
     Dosage: 20 MG MILLIGRAM(S), QD
     Route: 048
  30. ZYLORIC [Concomitant]
     Indication: HYPERURICAEMIA
     Dosage: 50 MG MILLIGRAM(S), QD
     Route: 048
  31. MAGNESIUM OXIDE [Concomitant]
     Indication: CONSTIPATION
     Dosage: 1 G GRAM(S), BID
     Route: 048
  32. ALOSENN [Concomitant]
     Indication: CONSTIPATION
     Dosage: 1 DF DOSAGE FORM, QD
     Route: 048
  33. FRANDOL [Concomitant]
     Dosage: 1 DF DOSAGE FORM, QD
     Route: 061
  34. ARGAMATE [Concomitant]
     Indication: HYPERKALAEMIA
     Dosage: 25 G GRAM(S), QD
     Route: 048

REACTIONS (3)
  - Cerebral artery embolism [Fatal]
  - Depressed level of consciousness [Unknown]
  - Hemiplegia [Unknown]
